FAERS Safety Report 9972788 (Version 1)
Quarter: 2014Q1

REPORT INFORMATION
  Report Type: Report from Study
  Country: CA (occurrence: CA)
  Receive Date: 20140306
  Receipt Date: 20140306
  Transmission Date: 20141002
  Serious: Yes (Hospitalization)
  Sender: FDA-Public Use
  Company Number: CA-JNJFOC-20140218577

PATIENT
  Sex: Male
  Weight: 91.17 kg

DRUGS (1)
  1. STELARA [Suspect]
     Indication: PSORIASIS
     Route: 058

REACTIONS (3)
  - Decreased immune responsiveness [Unknown]
  - Investigation [Unknown]
  - Viral infection [Unknown]
